FAERS Safety Report 9248969 (Version 1)
Quarter: 2013Q1

REPORT INFORMATION
  Report Type: Spontaneous
  Country: US (occurrence: None)
  Receive Date: 20130305
  Receipt Date: 20130305
  Transmission Date: 20140127
  Serious: Yes (Other)
  Sender: FDA-Public Use
  Company Number: 163-21880-12053112

PATIENT
  Age: 62 Year
  Sex: Male
  Weight: 94.1 kg

DRUGS (5)
  1. LISINOPRIL [Concomitant]
  2. PREDNISONE [Concomitant]
  3. ZOMETA [Concomitant]
  4. ONDANSETRON [Concomitant]
  5. REVLIMID [Suspect]
     Indication: PLASMA CELL MYELOMA
     Dosage: 25 MG, QDAY X 21 D, 7 D OFF, PO
     Route: 048
     Dates: start: 20120112, end: 20120524

REACTIONS (1)
  - Plasma cell myeloma [None]
